FAERS Safety Report 8493515-0 (Version None)
Quarter: 2012Q3

REPORT INFORMATION
  Report Type: 
  Country: None (occurrence: None)
  Receive Date: 20120706
  Receipt Date: 20120627
  Transmission Date: 20120928
  Serious: Yes (Other)
  Sender: FDA-Public Use
  Company Number: CA-UCBSA-047053

PATIENT
  Age: 49 Year
  Sex: Female
  Weight: 71.7 kg

DRUGS (15)
  1. ADDERALL XR SR [Concomitant]
     Indication: ATTENTION DEFICIT/HYPERACTIVITY DISORDER
     Route: 048
  2. LAMOTRYGINE [Concomitant]
     Indication: BIPOLAR DISORDER
     Route: 048
  3. CIMZIA [Suspect]
     Route: 058
     Dates: start: 20101201, end: 20110711
  4. PREDNISONE TAB [Concomitant]
     Indication: RHEUMATOID ARTHRITIS
     Route: 048
  5. PREVACID [Concomitant]
  6. REXALL PRENATAL VIT [Concomitant]
     Indication: GENERAL PHYSICAL HEALTH DETERIORATION
     Dosage: 1 TABLET TWICE DAILY
     Route: 048
  7. CYMBALTA [Concomitant]
     Indication: DEPRESSION
     Route: 048
  8. CIMZIA [Suspect]
     Indication: RHEUMATOID ARTHRITIS
     Route: 058
     Dates: start: 20110715
  9. MEGACAL-CA WITH VIT D [Suspect]
     Indication: GENERAL PHYSICAL HEALTH DETERIORATION
     Route: 048
     Dates: end: 20111005
  10. CELEBREX [Concomitant]
     Indication: RHEUMATOID ARTHRITIS
     Route: 048
  11. IRON [Concomitant]
  12. FOLIC ACID [Concomitant]
  13. METHOTREXATE [Concomitant]
     Indication: RHEUMATOID ARTHRITIS
     Route: 058
  14. VENTOLIN [Concomitant]
     Indication: ASTHMA
     Dosage: 2 PUFFS PER DOSE BY INH
     Route: 055
  15. STRATTERA [Concomitant]
     Indication: ATTENTION DEFICIT/HYPERACTIVITY DISORDER
     Route: 048

REACTIONS (2)
  - PNEUMONIA [None]
  - CARPAL TUNNEL SYNDROME [None]
